FAERS Safety Report 5062524-6 (Version None)
Quarter: 2006Q3

REPORT INFORMATION
  Report Type: 
  Country: None (occurrence: None)
  Receive Date: 20060726
  Receipt Date: 20051125
  Transmission Date: 20061208
  Serious: Yes (Hospitalization)
  Sender: FDA-Public Use
  Company Number: FR-BRISTOL-MYERS SQUIBB COMPANY-13193750

PATIENT
  Age: 54 Year
  Sex: Male
  Weight: 72 kg

DRUGS (1)
  1. REYATAZ [Suspect]
     Route: 048
     Dates: start: 20050601

REACTIONS (2)
  - NEPHROLITHIASIS [None]
  - RENAL COLIC [None]
